FAERS Safety Report 16779979 (Version 1)
Quarter: 2019Q3

REPORT INFORMATION
  Report Type: Spontaneous
  Country: IN (occurrence: IN)
  Receive Date: 20190906
  Receipt Date: 20190906
  Transmission Date: 20191005
  Serious: Yes (Other)
  Sender: FDA-Public Use
  Company Number: PHHY2019IN204648

PATIENT

DRUGS (2)
  1. MYCOPHENOLATE MOFETIL. [Suspect]
     Active Substance: MYCOPHENOLATE MOFETIL
     Indication: AUTOIMMUNE UVEITIS
     Dosage: 2 G, QD
     Route: 065
  2. PREDNISOLONE. [Suspect]
     Active Substance: PREDNISOLONE
     Indication: AUTOIMMUNE UVEITIS
     Dosage: 1 MG/KG BODY WEIGHT, QD
     Route: 048

REACTIONS (3)
  - Product use in unapproved indication [Unknown]
  - Autoimmune uveitis [Unknown]
  - Condition aggravated [Unknown]
